FAERS Safety Report 8814019 (Version 1)
Quarter: 2012Q4

REPORT INFORMATION
  Report Type: 
  Country: US (occurrence: US)
  Receive Date: 20120928
  Receipt Date: 20120928
  Transmission Date: 20130627
  Serious: No
  Sender: FDA-Public Use
  Company Number: US-009507513-1209USA008883

PATIENT
  Sex: Female
  Weight: 81.63 kg

DRUGS (4)
  1. DULERA [Suspect]
     Indication: CHRONIC OBSTRUCTIVE PULMONARY DISEASE
     Dosage: UNK, tid
  2. DULERA [Suspect]
     Indication: BRONCHITIS CHRONIC
  3. LYRICA [Concomitant]
     Indication: MUSCLE TWITCHING
     Dosage: 50 mg, bid
     Route: 048
     Dates: start: 2012
  4. ACETAMINOPHEN (+) OXYCODONE HYDROCHLORIDE [Concomitant]
     Indication: ARTHRITIS
     Dosage: 5/325, bid

REACTIONS (5)
  - Fluid retention [Not Recovered/Not Resolved]
  - Weight increased [Unknown]
  - Visual impairment [Not Recovered/Not Resolved]
  - Chronic obstructive pulmonary disease [Not Recovered/Not Resolved]
  - Hypertension [Unknown]
